FAERS Safety Report 7426818-9 (Version None)
Quarter: 2011Q2

REPORT INFORMATION
  Report Type: 
  Country: None (occurrence: None)
  Receive Date: 20110415
  Receipt Date: 20110415
  Transmission Date: 20111010
  Serious: Yes (Hospitalization, Other)
  Sender: FDA-Public Use
  Company Number: None

PATIENT
  Age: 75 Year
  Sex: Female
  Weight: 77.1115 kg

DRUGS (1)
  1. TOPAMAX [Suspect]
     Indication: CONVULSION
     Dosage: 25MG ONCE DAILY PO
     Route: 048
     Dates: start: 20100201, end: 20110401

REACTIONS (5)
  - ABDOMINAL PAIN [None]
  - URTICARIA [None]
  - PRODUCT ODOUR ABNORMAL [None]
  - TONGUE DISORDER [None]
  - HEADACHE [None]
